FAERS Safety Report 7581626-3 (Version None)
Quarter: 2011Q2

REPORT INFORMATION
  Report Type: 
  Country: None (occurrence: None)
  Receive Date: 20110629
  Receipt Date: 20101221
  Transmission Date: 20111010
  Serious: Yes (Death)
  Sender: FDA-Public Use
  Company Number: US-BAYER-201029234NA

PATIENT
  Age: 53 Year
  Sex: Female
  Weight: 114.74 kg

DRUGS (35)
  1. OMNISCAN [Suspect]
     Indication: NUCLEAR MAGNETIC RESONANCE IMAGING
  2. ENALAPRIL MALEATE [Concomitant]
  3. PHOSLO [Concomitant]
  4. MAGNEVIST [Suspect]
     Indication: NUCLEAR MAGNETIC RESONANCE IMAGING
  5. REGULAR INSULIN [Concomitant]
  6. ACETYLSALICYLIC ACID SRT [Concomitant]
  7. AVANDIA [Concomitant]
  8. ALLOPURINOL [Concomitant]
  9. SANTYL [Concomitant]
  10. ZYLOPRIM [Concomitant]
  11. KEPPRA [Concomitant]
  12. EPOGEN [Concomitant]
  13. MIRAPEX [Concomitant]
  14. DEMEDEX [Concomitant]
  15. NORCO [Concomitant]
  16. ASTELIN [Concomitant]
  17. VASOPRESSIN [Concomitant]
  18. ATROVENT [Concomitant]
  19. OPTIMARK [Suspect]
     Indication: NUCLEAR MAGNETIC RESONANCE IMAGING
  20. PROHANCE [Suspect]
     Indication: NUCLEAR MAGNETIC RESONANCE IMAGING
  21. SYNTHROID [Concomitant]
  22. VASOTEC [Concomitant]
  23. WELLBUTRIN XL [Concomitant]
  24. IBUPROFEN [Concomitant]
  25. RENAGEL [Concomitant]
  26. MULTIHANCE [Suspect]
     Indication: NUCLEAR MAGNETIC RESONANCE IMAGING
  27. HUMULIN N [Concomitant]
  28. XOPENEX [Concomitant]
  29. NEURONTIN [Concomitant]
  30. SENSIPAR [Concomitant]
  31. ATIVAN [Concomitant]
  32. GLUCOTROL [Concomitant]
  33. HYDROCODONE BITARTRATE AND ACETAMINOPHEN [Concomitant]
  34. NPH INSULIN [Concomitant]
  35. ZELNORM [Concomitant]

REACTIONS (3)
  - INJURY [None]
  - PAIN [None]
  - NEPHROGENIC SYSTEMIC FIBROSIS [None]
